FAERS Safety Report 4629391-3 (Version None)
Quarter: 2005Q2

REPORT INFORMATION
  Report Type: 
  Country: None (occurrence: None)
  Receive Date: 20050405
  Receipt Date: 20020701
  Transmission Date: 20051028
  Serious: No
  Sender: FDA-Public Use
  Company Number: 3876

PATIENT
  Age: 36 Year
  Sex: Female

DRUGS (3)
  1. CYTARABINE [Suspect]
     Dosage: 3.4 G
  2. IFOSFAMIDE [Suspect]
     Dosage: 2.5 G
  3. MESNA [Suspect]
     Dosage: 1 G

REACTIONS (4)
  - PYREXIA [None]
  - RASH [None]
  - TACHYCARDIA [None]
  - TACHYPNOEA [None]
